FAERS Safety Report 5499025-7 (Version None)
Quarter: 2007Q4

REPORT INFORMATION
  Report Type: 
  Country: None (occurrence: None)
  Receive Date: 20071026
  Receipt Date: 20070703
  Transmission Date: 20080405
  Serious: No
  Sender: FDA-Public Use
  Company Number: A0651967A

PATIENT
  Age: 78 Year
  Sex: Male

DRUGS (12)
  1. ADVAIR DISKUS 100/50 [Suspect]
     Indication: CHRONIC OBSTRUCTIVE PULMONARY DISEASE
     Route: 055
  2. ALBUTEROL [Concomitant]
  3. SPIRIVA [Concomitant]
  4. LOVASTATIN [Concomitant]
  5. WATER PILL [Concomitant]
  6. COUMADIN [Concomitant]
  7. DIGITEK [Concomitant]
  8. LISINOPRIL [Concomitant]
  9. GLIPIZIDE [Concomitant]
  10. METFORMIN [Concomitant]
  11. GEMFIBROZIL [Concomitant]
  12. OXYGEN [Concomitant]

REACTIONS (4)
  - CHRONIC OBSTRUCTIVE PULMONARY DISEASE [None]
  - DRUG INEFFECTIVE [None]
  - DYSPNOEA [None]
  - PHARMACEUTICAL PRODUCT COMPLAINT [None]
